FAERS Safety Report 24075282 (Version 2)
Quarter: 2024Q3

REPORT INFORMATION
  Report Type: Report from Study
  Country: US (occurrence: US)
  Receive Date: 20240710
  Receipt Date: 20240713
  Transmission Date: 20241016
  Serious: No
  Sender: ABBVIE
  Company Number: US-ABBVIE-5831935

PATIENT
  Sex: Male

DRUGS (1)
  1. BOTOX [Suspect]
     Active Substance: ONABOTULINUMTOXINA
     Indication: Hyperhidrosis
     Dosage: TIME INTERVAL: AS NECESSARY
     Route: 030

REACTIONS (1)
  - Off label use [Unknown]
